FAERS Safety Report 19355491 (Version 1)
Quarter: 2021Q2

REPORT INFORMATION
  Report Type: Spontaneous
  Country: US (occurrence: US)
  Receive Date: 20210601
  Receipt Date: 20210601
  Transmission Date: 20210717
  Serious: No
  Sender: FDA-Public Use
  Company Number: None

PATIENT
  Age: 79 Year
  Sex: Female

DRUGS (1)
  1. CAPECITABINE 500MG [Suspect]
     Active Substance: CAPECITABINE
     Indication: GASTROINTESTINAL CARCINOMA
     Dates: start: 20210114, end: 20210520

REACTIONS (3)
  - Weight decreased [None]
  - Diarrhoea [None]
  - Feeding disorder [None]

NARRATIVE: CASE EVENT DATE: 20210517
